FAERS Safety Report 18792929 (Version 1)
Quarter: 2021Q1

REPORT INFORMATION
  Report Type: Spontaneous
  Country: US (occurrence: US)
  Receive Date: 20210127
  Receipt Date: 20210127
  Transmission Date: 20210419
  Serious: No
  Sender: FDA-Public Use
  Company Number: US-SA-2021SA023891

PATIENT
  Age: 25 Year
  Sex: Female

DRUGS (2)
  1. DUPIXENT [Suspect]
     Active Substance: DUPILUMAB
     Dosage: UNK
     Route: 058
     Dates: start: 20190424
  2. DUPIXENT [Suspect]
     Active Substance: DUPILUMAB
     Dosage: 2DOSE

REACTIONS (2)
  - Product dose omission issue [Unknown]
  - Dermatitis [Unknown]

NARRATIVE: CASE EVENT DATE: 20210103
